FAERS Safety Report 6887507-2 (Version None)
Quarter: 2010Q3

REPORT INFORMATION
  Report Type: 
  Country: None (occurrence: None)
  Receive Date: 20100727
  Receipt Date: 20100709
  Transmission Date: 20110219
  Serious: Yes (Hospitalization)
  Sender: FDA-Public Use
  Company Number: DSA_43494_2010

PATIENT
  Age: 68 Year
  Sex: Male

DRUGS (9)
  1. ENALAPRIL MALEATE [Suspect]
     Indication: HYPERTENSION
     Dosage: 10 MG QD ORAL, (5 MG QD, ORAL
     Route: 048
     Dates: start: 20080729, end: 20100601
  2. ENALAPRIL MALEATE [Suspect]
     Indication: HYPERTENSION
     Dosage: 10 MG QD ORAL, (5 MG QD, ORAL
     Route: 048
     Dates: start: 20100630
  3. SEROQUEL [Suspect]
     Indication: MEDICATION ERROR
     Dosage: 200 MG QD, ORAL
     Route: 048
     Dates: start: 20100629, end: 20100629
  4. CONGESCOR (CONGESCOR - BISOPROLOL [Suspect]
     Indication: PRODUCT USED FOR UNKNOWN INDICATION
     Dosage: DF ORAL
     Route: 048
     Dates: start: 20080629
  5. CORDARONE [Suspect]
     Indication: PRODUCT USED FOR UNKNOWN INDICATION
     Dosage: 200 MG QD ORAL
     Route: 048
     Dates: start: 20080626
  6. LASIX [Concomitant]
  7. LASITONE [Concomitant]
  8. ASCRIPTIN [Concomitant]
  9. MONOKET [Concomitant]

REACTIONS (4)
  - HYPERHIDROSIS [None]
  - HYPOTENSION [None]
  - PRESYNCOPE [None]
  - WRONG DRUG ADMINISTERED [None]
